FAERS Safety Report 4563654-5 (Version None)
Quarter: 2005Q1

REPORT INFORMATION
  Report Type: 
  Country: None (occurrence: None)
  Receive Date: 20050125
  Receipt Date: 20050112
  Transmission Date: 20050727
  Serious: Yes (Other)
  Sender: FDA-Public Use
  Company Number: 2005012790

PATIENT
  Age: 27 Year
  Sex: Male

DRUGS (2)
  1. ZELDOX (CAPSULES) (ZIPRASIDONE) [Suspect]
     Indication: HALLUCINATION
     Dosage: 160 MG, ORAL
     Route: 048
  2. ALPRAZOLAM [Concomitant]

REACTIONS (2)
  - DIZZINESS [None]
  - SEMINOMA [None]
